FAERS Safety Report 8127387-0 (Version None)
Quarter: 2012Q1

REPORT INFORMATION
  Report Type: 
  Country: None (occurrence: None)
  Receive Date: 20120210
  Receipt Date: 20120207
  Transmission Date: 20120608
  Serious: Yes (Death)
  Sender: FDA-Public Use
  Company Number: GB-ABBOTT-12P-167-0902245-00

PATIENT
  Sex: Female
  Weight: 60 kg

DRUGS (2)
  1. OTHER BIOLOGIC [Suspect]
     Indication: PRODUCT USED FOR UNKNOWN INDICATION
  2. HUMIRA [Suspect]
     Indication: RHEUMATOID ARTHRITIS
     Route: 058
     Dates: start: 20030715, end: 20090203

REACTIONS (1)
  - LUNG NEOPLASM MALIGNANT [None]
